FAERS Safety Report 25305651 (Version 1)
Quarter: 2025Q2

REPORT INFORMATION
  Report Type: Spontaneous
  Country: FR (occurrence: FR)
  Receive Date: 20250513
  Receipt Date: 20250513
  Transmission Date: 20250716
  Serious: Yes (Hospitalization)
  Sender: MYLAN
  Company Number: None

PATIENT
  Age: 16 Year
  Sex: Female
  Weight: 64 kg

DRUGS (32)
  1. METFORMIN [Suspect]
     Active Substance: METFORMIN HYDROCHLORIDE
     Indication: Insulin resistant diabetes
     Dosage: 500 MILLIGRAM, BID
     Dates: start: 20250409, end: 20250410
  2. METFORMIN [Suspect]
     Active Substance: METFORMIN HYDROCHLORIDE
     Dosage: 500 MILLIGRAM, BID
     Route: 048
     Dates: start: 20250409, end: 20250410
  3. METFORMIN [Suspect]
     Active Substance: METFORMIN HYDROCHLORIDE
     Dosage: 500 MILLIGRAM, BID
     Route: 048
     Dates: start: 20250409, end: 20250410
  4. METFORMIN [Suspect]
     Active Substance: METFORMIN HYDROCHLORIDE
     Dosage: 500 MILLIGRAM, BID
     Dates: start: 20250409, end: 20250410
  5. LANTUS [Concomitant]
     Active Substance: INSULIN GLARGINE
  6. LANTUS [Concomitant]
     Active Substance: INSULIN GLARGINE
     Route: 065
  7. LANTUS [Concomitant]
     Active Substance: INSULIN GLARGINE
     Route: 065
  8. LANTUS [Concomitant]
     Active Substance: INSULIN GLARGINE
  9. NOVORAPID [Concomitant]
     Active Substance: INSULIN ASPART
  10. NOVORAPID [Concomitant]
     Active Substance: INSULIN ASPART
     Route: 065
  11. NOVORAPID [Concomitant]
     Active Substance: INSULIN ASPART
     Route: 065
  12. NOVORAPID [Concomitant]
     Active Substance: INSULIN ASPART
  13. DYDROGESTERONE\ESTRADIOL [Concomitant]
     Active Substance: DYDROGESTERONE\ESTRADIOL
  14. DYDROGESTERONE\ESTRADIOL [Concomitant]
     Active Substance: DYDROGESTERONE\ESTRADIOL
     Route: 065
  15. DYDROGESTERONE\ESTRADIOL [Concomitant]
     Active Substance: DYDROGESTERONE\ESTRADIOL
     Route: 065
  16. DYDROGESTERONE\ESTRADIOL [Concomitant]
     Active Substance: DYDROGESTERONE\ESTRADIOL
  17. SOMATROPIN [Concomitant]
     Active Substance: SOMATROPIN
  18. SOMATROPIN [Concomitant]
     Active Substance: SOMATROPIN
     Route: 065
  19. SOMATROPIN [Concomitant]
     Active Substance: SOMATROPIN
     Route: 065
  20. SOMATROPIN [Concomitant]
     Active Substance: SOMATROPIN
  21. HYDROCORTISONE [Concomitant]
     Active Substance: HYDROCORTISONE
  22. HYDROCORTISONE [Concomitant]
     Active Substance: HYDROCORTISONE
     Route: 065
  23. HYDROCORTISONE [Concomitant]
     Active Substance: HYDROCORTISONE
     Route: 065
  24. HYDROCORTISONE [Concomitant]
     Active Substance: HYDROCORTISONE
  25. LEVOTHYROXINE [Concomitant]
     Active Substance: LEVOTHYROXINE
  26. LEVOTHYROXINE [Concomitant]
     Active Substance: LEVOTHYROXINE
     Route: 065
  27. LEVOTHYROXINE [Concomitant]
     Active Substance: LEVOTHYROXINE
     Route: 065
  28. LEVOTHYROXINE [Concomitant]
     Active Substance: LEVOTHYROXINE
  29. Hydrocortisone panpharma [Concomitant]
  30. Hydrocortisone panpharma [Concomitant]
     Route: 065
  31. Hydrocortisone panpharma [Concomitant]
     Route: 065
  32. Hydrocortisone panpharma [Concomitant]

REACTIONS (1)
  - Hepatic cytolysis [Recovered/Resolved]

NARRATIVE: CASE EVENT DATE: 20250410
